FAERS Safety Report 17871702 (Version 2)
Quarter: 2020Q2

REPORT INFORMATION
  Report Type: Spontaneous
  Country: US (occurrence: US)
  Receive Date: 20200608
  Receipt Date: 20200615
  Transmission Date: 20200714
  Serious: Yes (Other)
  Sender: FDA-Public Use
  Company Number: US-COVIS PHARMA B.V.-2020COV00220

PATIENT
  Age: 8 Year
  Sex: Male
  Weight: 27.21 kg

DRUGS (5)
  1. UNSPECIFIED VITAMINS [Concomitant]
     Active Substance: VITAMINS
  2. ALVESCO [Suspect]
     Active Substance: CICLESONIDE
     Indication: COUGH
     Dosage: 80 ?G, 2X/DAY (1 PUFF IN THE AM AND 1 PUFF AT NIGHT)
     Dates: start: 202005, end: 20200529
  3. ALVESCO [Suspect]
     Active Substance: CICLESONIDE
     Dosage: UNK
     Dates: start: 2019
  4. ALBUTEROL. [Concomitant]
     Active Substance: ALBUTEROL
  5. ALVESCO [Suspect]
     Active Substance: CICLESONIDE
     Indication: DYSPNOEA
     Dosage: ^DOUBLE HIS DOSE^
     Dates: start: 202005, end: 202005

REACTIONS (9)
  - Anxiety [Recovering/Resolving]
  - Crying [Recovering/Resolving]
  - Restlessness [Recovering/Resolving]
  - Asthma [Recovering/Resolving]
  - Excessive eye blinking [Recovering/Resolving]
  - Off label use [Recovered/Resolved]
  - Tic [Recovering/Resolving]
  - Inappropriate affect [Recovering/Resolving]
  - Dyspnoea [Not Recovered/Not Resolved]

NARRATIVE: CASE EVENT DATE: 2019
